FAERS Safety Report 9890527 (Version 1)
Quarter: 2014Q1

REPORT INFORMATION
  Report Type: Spontaneous
  Country: US (occurrence: None)
  Receive Date: 20140210
  Receipt Date: 20140210
  Transmission Date: 20141002
  Serious: Yes (Life-Threatening, Hospitalization)
  Sender: FDA-Public Use
  Company Number: None

PATIENT
  Age: 84 Year
  Sex: Male
  Weight: 100.1 kg

DRUGS (3)
  1. WARFARIN [Suspect]
     Indication: DEEP VEIN THROMBOSIS
     Route: 048
     Dates: start: 19840101, end: 20140131
  2. WARFARIN [Suspect]
     Indication: PULMONARY EMBOLISM
     Route: 048
     Dates: start: 19840101, end: 20140131
  3. WARFARIN [Suspect]
     Indication: COAGULOPATHY
     Route: 048
     Dates: start: 19840101, end: 20140131

REACTIONS (4)
  - Gastrointestinal haemorrhage [None]
  - Colon cancer [None]
  - Anaemia [None]
  - Gastric haemorrhage [None]
